FAERS Safety Report 25204638 (Version 1)
Quarter: 2025Q2

REPORT INFORMATION
  Report Type: Spontaneous
  Country: JP (occurrence: JP)
  Receive Date: 20250416
  Receipt Date: 20250416
  Transmission Date: 20250716
  Serious: Yes (Hospitalization)
  Sender: EISAI
  Company Number: JP-Eisai Medical Research-EC-2022-116537

PATIENT
  Age: 36 Year
  Sex: Female

DRUGS (11)
  1. LENVIMA [Suspect]
     Active Substance: LENVATINIB
     Indication: Endometrial cancer
     Route: 048
     Dates: start: 20220225, end: 20220226
  2. LENVIMA [Suspect]
     Active Substance: LENVATINIB
     Dates: start: 20220302, end: 202204
  3. LENVIMA [Suspect]
     Active Substance: LENVATINIB
     Dates: start: 20220527, end: 20220630
  4. LENVIMA [Suspect]
     Active Substance: LENVATINIB
     Dates: start: 20220701, end: 2022
  5. LENVIMA [Suspect]
     Active Substance: LENVATINIB
  6. LENVIMA [Suspect]
     Active Substance: LENVATINIB
  7. LENVIMA [Suspect]
     Active Substance: LENVATINIB
  8. KEYTRUDA [Suspect]
     Active Substance: PEMBROLIZUMAB
     Indication: Endometrial cancer
     Route: 041
     Dates: start: 20220225
  9. COVID-19 VACCINE NOS [Suspect]
     Active Substance: COVID-19 VACCINE
     Indication: COVID-19 immunisation
     Dates: start: 20220425, end: 20220425
  10. AMLODIPINE [Concomitant]
     Active Substance: AMLODIPINE BESYLATE
     Indication: Hypertension
     Dosage: AS NEEDED
     Dates: start: 20220305, end: 20220317
  11. AMLODIPINE [Concomitant]
     Active Substance: AMLODIPINE BESYLATE
     Dosage: AS NEEDED
     Dates: start: 20220318

REACTIONS (1)
  - Liver disorder [Recovering/Resolving]

NARRATIVE: CASE EVENT DATE: 20220428
